FAERS Safety Report 13023953 (Version 1)
Quarter: 2016Q4

REPORT INFORMATION
  Report Type: Report from Study
  Country: IN (occurrence: IN)
  Receive Date: 20161213
  Receipt Date: 20161213
  Transmission Date: 20170207
  Serious: Yes (Other)
  Sender: FDA-Public Use
  Company Number: IN-ELI_LILLY_AND_COMPANY-IN201611005757

PATIENT
  Age: 41 Year
  Sex: Male

DRUGS (1)
  1. CETUXIMAB [Suspect]
     Active Substance: CETUXIMAB
     Indication: SQUAMOUS CELL CARCINOMA OF HEAD AND NECK
     Dosage: 400 MG/M2, UNKNOWN
     Route: 065
     Dates: start: 20160616

REACTIONS (4)
  - Dizziness [Unknown]
  - Stomatitis haemorrhagic [Unknown]
  - Vomiting [Unknown]
  - Oral pain [Unknown]
